FAERS Safety Report 6950524-8 (Version None)
Quarter: 2010Q3

REPORT INFORMATION
  Report Type: 
  Country: None (occurrence: None)
  Receive Date: 20100828
  Receipt Date: 20100211
  Transmission Date: 20110219
  Serious: No
  Sender: FDA-Public Use
  Company Number: US-ABBOTT-10P-163-0626038-00

PATIENT
  Sex: Male
  Weight: 95.34 kg

DRUGS (12)
  1. NIASPAN [Suspect]
     Indication: CORONARY ARTERY DISEASE
     Dates: start: 20100105, end: 20100209
  2. NIASPAN [Suspect]
     Dates: start: 20100209
  3. ASPIRIN [Concomitant]
     Indication: PROPHYLAXIS
     Dates: start: 20100105
  4. LISINOPRIL [Concomitant]
     Indication: HEART RATE IRREGULAR
  5. CALCIUM [Concomitant]
     Indication: MINERAL SUPPLEMENTATION
     Dosage: DAILY
  6. ALEVE (CAPLET) [Concomitant]
     Indication: PAIN
     Dosage: TAKES AT BEDTIME
  7. MULTI-VITAMINS [Concomitant]
     Indication: VITAMIN SUPPLEMENTATION
     Dosage: DAILY
  8. SIMVASTATIN [Concomitant]
     Indication: CORONARY ARTERY DISEASE
  9. OMEPRAZOLE [Concomitant]
     Indication: GASTROOESOPHAGEAL REFLUX DISEASE
     Dates: start: 20100211
  10. OMEPRAZOLE [Concomitant]
     Dates: end: 20100211
  11. UNKNOWN BETA BLOCKER [Concomitant]
     Indication: HEART RATE IRREGULAR
     Dates: start: 20080101
  12. METOPROLOL [Concomitant]
     Indication: HEART RATE IRREGULAR
     Dosage: HALF IN AM, HALF IN PM
     Dates: start: 20080101

REACTIONS (6)
  - ABDOMINAL DISCOMFORT [None]
  - ABDOMINAL PAIN UPPER [None]
  - FLATULENCE [None]
  - GASTROOESOPHAGEAL REFLUX DISEASE [None]
  - MYALGIA [None]
  - PARAESTHESIA [None]
